FAERS Safety Report 17544151 (Version 4)
Quarter: 2020Q3

REPORT INFORMATION
  Report Type: Spontaneous
  Country: US (occurrence: US)
  Receive Date: 20200316
  Receipt Date: 20200708
  Transmission Date: 20201102
  Serious: Yes (Other)
  Sender: FDA-Public Use
  Company Number: US-009507513-2003USA005532

PATIENT
  Age: 25 Year
  Sex: Female
  Weight: 92.08 kg

DRUGS (2)
  1. NEXPLANON [Suspect]
     Active Substance: ETONOGESTREL
     Indication: CONTRACEPTION
     Dosage: 1 ROD EVERY 3 YEARS, LEFT UPPER ARM
     Route: 059
     Dates: start: 20191024, end: 20191025
  2. NEXPLANON [Suspect]
     Active Substance: ETONOGESTREL
     Indication: MENSTRUAL CYCLE MANAGEMENT
     Dosage: 1 ROD EVERY 3 YEARS
     Route: 059
     Dates: start: 20191025, end: 20200311

REACTIONS (11)
  - Vaginal haemorrhage [Unknown]
  - Cellulitis [Unknown]
  - Implant site infection [Unknown]
  - Weight decreased [Unknown]
  - Implant site erythema [Unknown]
  - Hormone level abnormal [Unknown]
  - Menometrorrhagia [Unknown]
  - Implant site pain [Unknown]
  - Product use in unapproved indication [Unknown]
  - Wrong technique in product usage process [Unknown]
  - Device expulsion [Recovered/Resolved]

NARRATIVE: CASE EVENT DATE: 201910
